FAERS Safety Report 23238560 (Version 1)
Quarter: 2023Q4

REPORT INFORMATION
  Report Type: Spontaneous
  Country: US (occurrence: US)
  Receive Date: 20231129
  Receipt Date: 20231129
  Transmission Date: 20240109
  Serious: No
  Sender: FDA-Public Use
  Company Number: US-ELI_LILLY_AND_COMPANY-US202311012999

PATIENT
  Age: 62 Year
  Sex: Female

DRUGS (2)
  1. TRULICITY [Suspect]
     Active Substance: DULAGLUTIDE
     Indication: Product used for unknown indication
     Dosage: 1.5 MG, UNKNOWN
     Route: 065
  2. TRULICITY [Suspect]
     Active Substance: DULAGLUTIDE
     Dosage: 1.5 MG, UNKNOWN
     Route: 065

REACTIONS (10)
  - Blood glucose increased [Unknown]
  - Pain [Unknown]
  - Dizziness [Recovered/Resolved]
  - Angina pectoris [Unknown]
  - Bacterial infection [Unknown]
  - Injection site mass [Recovered/Resolved]
  - Musculoskeletal chest pain [Unknown]
  - Groin pain [Unknown]
  - Skin irritation [Unknown]
  - Pain in extremity [Unknown]

NARRATIVE: CASE EVENT DATE: 20231117
